FAERS Safety Report 5655356-9 (Version None)
Quarter: 2008Q1

REPORT INFORMATION
  Report Type: 
  Country: None (occurrence: None)
  Receive Date: 20080307
  Receipt Date: 20080305
  Transmission Date: 20080703
  Serious: Yes (Disabling)
  Sender: FDA-Public Use
  Company Number: GB-ASTRAZENECA-2008GB00439

PATIENT
  Age: 59 Year
  Sex: Female

DRUGS (4)
  1. QUETIAPINE FUMARATE [Suspect]
     Indication: HYPOMANIA
     Route: 048
     Dates: start: 20080129, end: 20080129
  2. CITALOPRAM HYDROBROMIDE [Concomitant]
     Indication: DEPRESSION
     Route: 048
     Dates: start: 20071213, end: 20080102
  3. DIAZEPAM [Concomitant]
     Indication: INSOMNIA
     Route: 048
     Dates: start: 20080102, end: 20080218
  4. OLANZAPINE [Concomitant]
     Indication: AFFECTIVE DISORDER
     Route: 048
     Dates: start: 20071114, end: 20080102

REACTIONS (3)
  - CONFUSIONAL STATE [None]
  - GAIT DISTURBANCE [None]
  - HALLUCINATION, AUDITORY [None]
